FAERS Safety Report 13258094 (Version 1)
Quarter: 2017Q1

REPORT INFORMATION
  Report Type: Report from Study
  Country: US (occurrence: US)
  Receive Date: 20170221
  Receipt Date: 20170221
  Transmission Date: 20170428
  Serious: Yes (Other)
  Sender: FDA-Public Use
  Company Number: US-AMGEN-USASL2017025169

PATIENT
  Sex: Female

DRUGS (1)
  1. ENBREL [Suspect]
     Active Substance: ETANERCEPT
     Indication: PRODUCT USED FOR UNKNOWN INDICATION
     Dosage: UNK UNK, UNK
     Route: 065

REACTIONS (6)
  - Drug dose omission [Unknown]
  - Osteoarthritis [Unknown]
  - Pain [Unknown]
  - Arthralgia [Unknown]
  - Spinal cord injury [Unknown]
  - Trigger finger [Unknown]

NARRATIVE: CASE EVENT DATE: 2017
